FAERS Safety Report 7936240-4 (Version None)
Quarter: 2011Q4

REPORT INFORMATION
  Report Type: 
  Country: None (occurrence: None)
  Receive Date: 20111121
  Receipt Date: 20111111
  Transmission Date: 20120403
  Serious: Yes (Death)
  Sender: FDA-Public Use
  Company Number: DEP_00529_2011

PATIENT
  Age: 62 Year
  Sex: Female
  Weight: 121 kg

DRUGS (3)
  1. GABAPENTIN [Suspect]
     Indication: PRODUCT USED FOR UNKNOWN INDICATION
     Dosage: (7 TO 8 (300 MG CAPSULES - APPROXIMATELY 2210 MG TOTAL))
  2. SIMVASTATIN [Concomitant]
  3. FLUOXETINE [Concomitant]

REACTIONS (11)
  - UNRESPONSIVE TO STIMULI [None]
  - RENAL ADENOMA [None]
  - TOXICITY TO VARIOUS AGENTS [None]
  - CARDIOMEGALY [None]
  - COMPLETED SUICIDE [None]
  - MUSCLE RIGIDITY [None]
  - NEPHROSCLEROSIS [None]
  - GOITRE [None]
  - LIVIDITY [None]
  - INTENTIONAL OVERDOSE [None]
  - CARDIOPULMONARY FAILURE [None]
